FAERS Safety Report 9730399 (Version 1)
Quarter: 2013Q4

REPORT INFORMATION
  Report Type: Report from Study
  Country: US (occurrence: US)
  Receive Date: 20131202
  Receipt Date: 20131202
  Transmission Date: 20140711
  Serious: Yes (Death)
  Sender: FDA-Public Use
  Company Number: US-ROCHE-1310221

PATIENT
  Sex: Female

DRUGS (13)
  1. AVASTIN [Suspect]
     Indication: LUNG NEOPLASM MALIGNANT
     Route: 065
  2. AVASTIN [Suspect]
     Route: 042
     Dates: start: 20110627
  3. ERBITUX [Concomitant]
  4. ALOXI [Concomitant]
     Dosage: DAY 1 AND DAY 8
     Route: 042
  5. DECADRON [Concomitant]
     Dosage: DAY 1 AND DAY 8
     Route: 042
  6. NACL .9% [Concomitant]
     Route: 042
  7. GEMZAR [Concomitant]
     Dosage: DAY 1 AND DAY 8
     Route: 042
  8. BENADRYL (UNITED STATES) [Concomitant]
     Route: 042
  9. TAXOL [Concomitant]
  10. NAVELBINE [Concomitant]
  11. ALIMTA [Concomitant]
  12. TAXOTERE [Concomitant]
  13. TARCEVA [Concomitant]
     Route: 065

REACTIONS (2)
  - Disease progression [Fatal]
  - Neutrophil count decreased [Unknown]
